FAERS Safety Report 15852660 (Version 1)
Quarter: 2019Q1

REPORT INFORMATION
  Report Type: Spontaneous
  Country: US (occurrence: US)
  Receive Date: 20190118
  Receipt Date: 20190118
  Transmission Date: 20190417
  Serious: Yes (Other)
  Sender: FDA-Public Use
  Company Number: None

PATIENT
  Age: 6 Year
  Sex: Female

DRUGS (2)
  1. LEVOFLOXACIN. [Suspect]
     Active Substance: LEVOFLOXACIN
     Indication: MASTOIDITIS
     Route: 048
     Dates: start: 20190117, end: 20190117
  2. CANAKINUMAB. [Concomitant]
     Active Substance: CANAKINUMAB
     Dates: start: 20190102, end: 20190102

REACTIONS (5)
  - Pyrexia [None]
  - Headache [None]
  - Drug interaction [None]
  - Myalgia [None]
  - Photophobia [None]

NARRATIVE: CASE EVENT DATE: 20190117
